FAERS Safety Report 8949934 (Version 3)
Quarter: 2013Q1

REPORT INFORMATION
  Report Type: Spontaneous
  Country: US (occurrence: US)
  Receive Date: 20121205
  Receipt Date: 20130110
  Transmission Date: 20140127
  Serious: Yes (Death, Other)
  Sender: FDA-Public Use
  Company Number: US-TEVA-373902USA

PATIENT
  Sex: Female

DRUGS (4)
  1. COPAXONE [Suspect]
     Indication: MULTIPLE SCLEROSIS
     Dates: start: 20000804, end: 2009
  2. SYNTHROID [Concomitant]
  3. BENICAR [Concomitant]
  4. RILUTEK [Concomitant]

REACTIONS (2)
  - Amyotrophic lateral sclerosis [Unknown]
  - Death [Fatal]
